FAERS Safety Report 23512543 (Version 2)
Quarter: 2024Q1

REPORT INFORMATION
  Report Type: Spontaneous
  Country: AU (occurrence: AU)
  Receive Date: 20240212
  Receipt Date: 20240318
  Transmission Date: 20240410
  Serious: Yes (Death)
  Sender: FDA-Public Use
  Company Number: AU-BAYER-2024A019427

PATIENT
  Age: 43 Year
  Sex: Female

DRUGS (4)
  1. MIRENA [Suspect]
     Active Substance: LEVONORGESTREL
     Indication: Uterine polyp
     Dosage: 20?G/DAY
     Route: 015
     Dates: start: 202312, end: 20240120
  2. MIRENA [Suspect]
     Active Substance: LEVONORGESTREL
     Indication: Mental disorder
  3. MIRENA [Suspect]
     Active Substance: LEVONORGESTREL
     Indication: Heavy menstrual bleeding
  4. LEVLEN [Concomitant]
     Active Substance: ETHINYL ESTRADIOL\LEVONORGESTREL

REACTIONS (5)
  - Completed suicide [Fatal]
  - Mental disorder [Fatal]
  - Self-injurious ideation [Fatal]
  - Off label use [None]
  - Off label use of device [None]

NARRATIVE: CASE EVENT DATE: 20240101
